FAERS Safety Report 21191633 (Version 1)
Quarter: 2022Q3

REPORT INFORMATION
  Report Type: Spontaneous
  Country: US (occurrence: None)
  Receive Date: 20220809
  Receipt Date: 20220809
  Transmission Date: 20221027
  Serious: Yes (Life-Threatening, Disabling)
  Sender: FDA-Public Use
  Company Number: None

PATIENT
  Age: 40 Year
  Sex: Female
  Weight: 89.55 kg

DRUGS (7)
  1. ELIQUIS [Suspect]
     Active Substance: APIXABAN
     Indication: Coagulopathy
     Dates: start: 20160414, end: 20170606
  2. ELIQUIS [Suspect]
     Active Substance: APIXABAN
     Indication: Factor V Leiden mutation
  3. DICLOFENAC [Concomitant]
     Active Substance: DICLOFENAC
  4. MOBIC [Concomitant]
     Active Substance: MELOXICAM
  5. ALEVE PM [Concomitant]
     Active Substance: DIPHENHYDRAMINE HYDROCHLORIDE\NAPROXEN SODIUM
  6. DEVICE [Concomitant]
     Active Substance: DEVICE
  7. VITAMINS [Concomitant]
     Active Substance: VITAMINS

REACTIONS (4)
  - Deep vein thrombosis [None]
  - Fibrin D dimer increased [None]
  - Posterior reversible encephalopathy syndrome [None]
  - Victim of crime [None]

NARRATIVE: CASE EVENT DATE: 20180711
